FAERS Safety Report 10276308 (Version 1)
Quarter: 2014Q3

REPORT INFORMATION
  Report Type: Report from Study
  Country: US (occurrence: US)
  Receive Date: 20140703
  Receipt Date: 20140703
  Transmission Date: 20150326
  Serious: Yes (Life-Threatening, Hospitalization)
  Sender: FDA-Public Use
  Company Number: PHEH2014US012947

PATIENT
  Sex: Female

DRUGS (9)
  1. EXFORGE [Concomitant]
     Active Substance: AMLODIPINE BESYLATE\VALSARTAN
  2. MULTI-VIT [Concomitant]
     Active Substance: VITAMINS
  3. GLIPIZIDE XL [Concomitant]
     Active Substance: GLIPIZIDE
     Dosage: 5 MG, UNK
  4. METFORMIN [Suspect]
     Active Substance: METFORMIN HYDROCHLORIDE
  5. ULORIC [Concomitant]
     Active Substance: FEBUXOSTAT
  6. XANAX [Concomitant]
     Active Substance: ALPRAZOLAM
     Dosage: 1 MG, UNK
  7. PREDNISONE. [Concomitant]
     Active Substance: PREDNISONE
  8. LASIX [Concomitant]
     Active Substance: FUROSEMIDE
     Dosage: 1 DF, (20 MG) PER DAY
  9. BONE CARE                          /07790401/ [Concomitant]

REACTIONS (1)
  - Feeling abnormal [Unknown]
